FAERS Safety Report 6371827-4 (Version None)
Quarter: 2009Q3

REPORT INFORMATION
  Report Type: 
  Country: None (occurrence: None)
  Receive Date: 20090918
  Receipt Date: 20090918
  Transmission Date: 20100115
  Serious: No
  Sender: FDA-Public Use
  Company Number: None

PATIENT
  Age: 53 Year
  Sex: Female
  Weight: 58.9676 kg

DRUGS (1)
  1. LEVAQUIN [Suspect]
     Indication: LUNG INFECTION
     Dosage: 1 TABLET EVERY 24 HRS/ 5 DAYS PO
     Route: 048
     Dates: start: 20090115, end: 20090225

REACTIONS (8)
  - ABASIA [None]
  - BACTERIAL SEPSIS [None]
  - DYSSTASIA [None]
  - GASTROINTESTINAL DISORDER [None]
  - MUSCULAR WEAKNESS [None]
  - PAIN IN EXTREMITY [None]
  - SEPTIC SHOCK [None]
  - TENDON RUPTURE [None]
